FAERS Safety Report 9743144 (Version 2)
Quarter: 2015Q3

REPORT INFORMATION
  Report Type: Spontaneous
  Country: US (occurrence: US)
  Receive Date: 20131210
  Receipt Date: 20150804
  Transmission Date: 20151125
  Serious: No
  Sender: FDA-Public Use
  Company Number: US-GILEAD-2009-0024301

PATIENT
  Age: 88 Year
  Sex: Female
  Weight: 48.08 kg

DRUGS (16)
  1. LETAIRIS [Suspect]
     Active Substance: AMBRISENTAN
     Route: 048
     Dates: start: 20090218
  2. COUMADIN [Concomitant]
     Active Substance: WARFARIN SODIUM
  3. BENADRYL [Concomitant]
     Active Substance: DIPHENHYDRAMINE HYDROCHLORIDE
  4. TRAVATAN [Concomitant]
     Active Substance: TRAVOPROST
  5. METOPROLOL [Concomitant]
     Active Substance: METOPROLOL
  6. SPIRIVA [Concomitant]
     Active Substance: TIOTROPIUM BROMIDE MONOHYDRATE
  7. HYDREA [Concomitant]
     Active Substance: HYDROXYUREA
  8. LASIX [Concomitant]
     Active Substance: FUROSEMIDE
  9. ALPHAGAN P [Concomitant]
     Active Substance: BRIMONIDINE TARTRATE
  10. LETAIRIS [Suspect]
     Active Substance: AMBRISENTAN
     Indication: PULMONARY ARTERIAL HYPERTENSION
     Route: 048
  11. CLONIDINE. [Concomitant]
     Active Substance: CLONIDINE
  12. ARANESP [Concomitant]
     Active Substance: DARBEPOETIN ALFA
  13. BENTYL [Concomitant]
     Active Substance: DICYCLOMINE HYDROCHLORIDE
  14. ZOLOFT [Concomitant]
     Active Substance: SERTRALINE HYDROCHLORIDE
  15. PREVACID [Concomitant]
     Active Substance: LANSOPRAZOLE
  16. POTASSIUM CHLORIDE. [Concomitant]
     Active Substance: POTASSIUM CHLORIDE

REACTIONS (1)
  - Oedema [Unknown]
